FAERS Safety Report 16861804 (Version 1)
Quarter: 2019Q3

REPORT INFORMATION
  Report Type: Spontaneous
  Country: US (occurrence: US)
  Receive Date: 20190927
  Receipt Date: 20190927
  Transmission Date: 20191005
  Serious: Yes (Hospitalization)
  Sender: FDA-Public Use
  Company Number: US-SPARK THERAPEUTICS, INC.-US-SPK-19-00046

PATIENT
  Age: 42 Year
  Sex: Female

DRUGS (4)
  1. LUXTURNA [Suspect]
     Active Substance: VORETIGENE NEPARVOVEC-RZYL
     Indication: RETINAL DYSTROPHY
     Dosage: TO THE LEFT EYE
     Dates: start: 20181203, end: 20181203
  2. LUXTURNA [Suspect]
     Active Substance: VORETIGENE NEPARVOVEC-RZYL
     Indication: RETINAL DYSTROPHY
     Dosage: TO THE LEFT EYE
     Dates: start: 20181203, end: 20181203
  3. LUXTURNA [Suspect]
     Active Substance: VORETIGENE NEPARVOVEC-RZYL
     Dosage: TO THE RIGHT EYE
     Dates: start: 20181217, end: 20181217
  4. LUXTURNA [Suspect]
     Active Substance: VORETIGENE NEPARVOVEC-RZYL
     Dosage: TO TH RIGHT EYE
     Dates: start: 20181217, end: 20181217

REACTIONS (1)
  - Meningioma [Unknown]
